FAERS Safety Report 8054323 (Version 3)
Quarter: 2013Q2

REPORT INFORMATION
  Report Type: Spontaneous
  Country: US (occurrence: US)
  Receive Date: 20110726
  Receipt Date: 20130501
  Transmission Date: 20140414
  Serious: Yes (Hospitalization, Other)
  Sender: FDA-Public Use
  Company Number: US-BAYER-2011-064019

PATIENT
  Age: 19 Year
  Sex: Female
  Weight: 63 kg

DRUGS (2)
  1. YAZ [Suspect]
     Dosage: UNK
     Dates: start: 200905, end: 20090711
  2. ALLERGY [CHLORPHENAMINE] [Concomitant]
     Dosage: UNK UNK, QD
     Dates: start: 20090711

REACTIONS (10)
  - Pelvic venous thrombosis [None]
  - Oedema peripheral [None]
  - Deep vein thrombosis [None]
  - Oedema peripheral [None]
  - Vena cava thrombosis [None]
  - Deep vein thrombosis [None]
  - Injury [None]
  - Pain [None]
  - Anxiety [None]
  - Anhedonia [None]
